FAERS Safety Report 12673872 (Version 4)
Quarter: 2017Q1

REPORT INFORMATION
  Report Type: Report from Study
  Country: DE (occurrence: DE)
  Receive Date: 20160822
  Receipt Date: 20170117
  Transmission Date: 20170428
  Serious: Yes (Life-Threatening, Hospitalization, Other)
  Sender: FDA-Public Use
  Company Number: DE-BIOGEN-2016BI00280544

PATIENT
  Age: 51 Year
  Sex: Female

DRUGS (6)
  1. TRIMIPRAMINE [Concomitant]
     Active Substance: TRIMIPRAMINE
     Indication: DEPRESSION
     Route: 065
     Dates: start: 20160823
  2. AVONEX [Suspect]
     Active Substance: INTERFERON BETA-1A
     Indication: MULTIPLE SCLEROSIS
     Route: 030
     Dates: start: 20090101, end: 20101201
  3. TECFIDERA [Suspect]
     Active Substance: DIMETHYL FUMARATE
     Route: 065
     Dates: end: 201611
  4. AVONEX [Suspect]
     Active Substance: INTERFERON BETA-1A
     Route: 030
     Dates: start: 20120501, end: 20130701
  5. OMEPRAZOLE. [Concomitant]
     Active Substance: OMEPRAZOLE
     Indication: PROPHYLAXIS
     Route: 065
     Dates: start: 20150731, end: 201511
  6. TECFIDERA [Suspect]
     Active Substance: DIMETHYL FUMARATE
     Indication: MULTIPLE SCLEROSIS
     Dosage: MAINTENANCE DOSE
     Route: 048
     Dates: start: 20150601

REACTIONS (6)
  - Thoracic vertebral fracture [Not Recovered/Not Resolved]
  - Breast disorder [Not Recovered/Not Resolved]
  - Vomiting [Recovered/Resolved]
  - Breast cancer metastatic [Recovered/Resolved with Sequelae]
  - Impaired healing [Not Recovered/Not Resolved]
  - Tooth repair [Unknown]

NARRATIVE: CASE EVENT DATE: 20160815
